FAERS Safety Report 8252212-7 (Version None)
Quarter: 2012Q2

REPORT INFORMATION
  Report Type: 
  Country: None (occurrence: None)
  Receive Date: 20120402
  Receipt Date: 20120323
  Transmission Date: 20120825
  Serious: Yes (Death)
  Sender: FDA-Public Use
  Company Number: US-BAYER-2011-064215

PATIENT
  Age: 31 Year
  Sex: Female
  Weight: 181.41 kg

DRUGS (13)
  1. VICODIN [Concomitant]
     Indication: JOINT INJURY
  2. PROMETHAZINE DM [Concomitant]
     Dosage: UNK
     Dates: start: 20090530
  3. YAZ [Suspect]
     Indication: VAGINAL HAEMORRHAGE
     Dosage: UNK
     Dates: start: 20090709, end: 20090726
  4. TRAMADOL HCL [Concomitant]
     Indication: JOINT INJURY
     Dosage: 50 MG, UNK
     Dates: start: 20090723
  5. MUCINEX DM [Concomitant]
  6. YAZ [Suspect]
     Indication: UTERINE LEIOMYOMA
  7. IBUPROFEN [Concomitant]
     Dosage: UNK
     Dates: start: 20090519, end: 20090723
  8. MOTRIN [Concomitant]
     Dosage: UNK
     Dates: start: 20090519, end: 20090723
  9. VICODIN [Concomitant]
     Indication: PAIN
     Dosage: UNK
     Dates: start: 20090701
  10. IBUPROFEN (ADVIL) [Concomitant]
  11. CIPROFLOXACIN [Concomitant]
     Indication: URINARY TRACT INFECTION
     Dosage: UNK
     Dates: start: 20090519
  12. TRAMADOL HCL [Concomitant]
     Indication: PAIN
     Dosage: 50 MG, UNK
     Dates: start: 20090718
  13. AVELOX [Concomitant]
     Dosage: 400 MG, UNK
     Dates: start: 20090530

REACTIONS (6)
  - SPEECH DISORDER [None]
  - DYSPNOEA [None]
  - PANIC REACTION [None]
  - PULMONARY EMBOLISM [None]
  - CHEST PAIN [None]
  - LOSS OF CONSCIOUSNESS [None]
